FAERS Safety Report 18065371 (Version 2)
Quarter: 2020Q3

REPORT INFORMATION
  Report Type: Report from Study
  Country: US (occurrence: US)
  Receive Date: 20200724
  Receipt Date: 20200828
  Transmission Date: 20201103
  Serious: Yes (Hospitalization)
  Sender: FDA-Public Use
  Company Number: US-ASTELLAS-2020US024718

PATIENT
  Age: 85 Year
  Sex: Male

DRUGS (1)
  1. ENZALUTAMIDE [Suspect]
     Active Substance: ENZALUTAMIDE
     Indication: PROSTATE CANCER
     Route: 048
     Dates: start: 20200703

REACTIONS (3)
  - Chest pain [Unknown]
  - Lethargy [Unknown]
  - Asthenia [Unknown]

NARRATIVE: CASE EVENT DATE: 20200713
